FAERS Safety Report 10347859 (Version 1)
Quarter: 2014Q3

REPORT INFORMATION
  Report Type: Spontaneous
  Country: BR (occurrence: BR)
  Receive Date: 20140729
  Receipt Date: 20140729
  Transmission Date: 20150326
  Serious: Yes (Other)
  Sender: FDA-Public Use
  Company Number: BR-PFIZER INC-2014209174

PATIENT
  Age: 78 Year
  Sex: Female
  Weight: 53 kg

DRUGS (12)
  1. VITAMINA D3 [Concomitant]
     Dosage: ONCE DAILY
  2. CELEBRA [Suspect]
     Active Substance: CELECOXIB
     Indication: SPINAL FRACTURE
     Dosage: STRENGTH 200MG, TWICE DAILY
     Route: 048
     Dates: start: 2008, end: 2008
  3. ALENDRONATE SODIUM. [Concomitant]
     Active Substance: ALENDRONATE SODIUM
     Indication: OSTEOPOROSIS
     Dosage: (STRENGTH 70MG) AT ONCE WEEKLY
  4. INDAPAMIDE. [Concomitant]
     Active Substance: INDAPAMIDE
     Indication: HYPERTENSION
     Dosage: (STRENGTH 1.5, UNIT NOT PROVIDED) AT TWICE DAILY
  5. ATENOLOL. [Concomitant]
     Active Substance: ATENOLOL
     Indication: HYPERTENSION
     Dosage: (STRENGTH ^25G^) AT TWICE DAILY
  6. LUTEIN [Concomitant]
     Active Substance: LUTEIN
     Dosage: STRENGTH 3MG AT ONCE DAILY
  7. VITAMINA D3 [Concomitant]
     Dosage: THREE TIMES DAILY
  8. AMLODIPINE [Concomitant]
     Active Substance: AMLODIPINE BESYLATE
     Indication: HYPERTENSION
     Dosage: (STRENGTH 7.5, UNIT NOT PROVIDED) TWICE DAILY
  9. CALCIUM CITRATE [Concomitant]
     Active Substance: CALCIUM CITRATE
     Dosage: 2X/DAY
  10. VALSARTAN. [Concomitant]
     Active Substance: VALSARTAN
     Indication: HYPERTENSION
     Dosage: (STRENGTH 170MG) AT TWICE DAILY
  11. GLIFAGE [Concomitant]
     Active Substance: METFORMIN HYDROCHLORIDE
     Indication: DIABETES MELLITUS
     Dosage: 3X/DAY
  12. LUTEIN [Concomitant]
     Active Substance: LUTEIN
     Dosage: 3X/DAY

REACTIONS (2)
  - Spinal fracture [Unknown]
  - Spinal disorder [Unknown]
